FAERS Safety Report 8031835-4 (Version None)
Quarter: 2012Q1

REPORT INFORMATION
  Report Type: 
  Country: None (occurrence: None)
  Receive Date: 20120109
  Receipt Date: 20111228
  Transmission Date: 20120608
  Serious: Yes (Other)
  Sender: FDA-Public Use
  Company Number: US-AMGEN-USASP2011069457

PATIENT
  Age: 94 Year
  Sex: Male

DRUGS (2)
  1. SENSIPAR [Suspect]
     Indication: BLOOD CALCIUM ABNORMAL
  2. SENSIPAR [Suspect]
     Indication: ELECTROLYTE IMBALANCE
     Dosage: 30 MG, QD
     Route: 048

REACTIONS (3)
  - MACULAR DEGENERATION [None]
  - BLINDNESS [None]
  - GOUT [None]
